FAERS Safety Report 8419600-7 (Version None)
Quarter: 2012Q2

REPORT INFORMATION
  Report Type: 
  Country: None (occurrence: None)
  Receive Date: 20120607
  Receipt Date: 20120529
  Transmission Date: 20120825
  Serious: Yes (Hospitalization, Other)
  Sender: FDA-Public Use
  Company Number: US-ABBOTT-12P-163-0940470-00

PATIENT
  Sex: Male

DRUGS (2)
  1. HUMIRA [Suspect]
  2. HUMIRA [Suspect]
     Indication: PRODUCT USED FOR UNKNOWN INDICATION
     Route: 058
     Dates: start: 20120201, end: 20120318

REACTIONS (6)
  - CYSTITIS [None]
  - KIDNEY INFECTION [None]
  - SEPSIS [None]
  - SURGERY [None]
  - NEPHROLITHIASIS [None]
  - PNEUMONIA [None]
